FAERS Safety Report 4617557-8 (Version None)
Quarter: 2005Q1

REPORT INFORMATION
  Report Type: 
  Country: None (occurrence: None)
  Receive Date: 20050324
  Receipt Date: 20050314
  Transmission Date: 20050727
  Serious: Yes (Hospitalization)
  Sender: FDA-Public Use
  Company Number: FR-JNJFOC-20050303358

PATIENT
  Age: 31 Year
  Sex: Male

DRUGS (7)
  1. RISPERDAL [Suspect]
     Indication: DRUG USE FOR UNKNOWN INDICATION
     Route: 049
     Dates: start: 19980101, end: 20030202
  2. AOTAL [Suspect]
     Indication: DRUG USE FOR UNKNOWN INDICATION
     Route: 049
     Dates: start: 20030127, end: 20030202
  3. TEGRETOL [Suspect]
     Route: 049
     Dates: start: 20030115, end: 20030202
  4. TEGRETOL [Suspect]
     Indication: DRUG USE FOR UNKNOWN INDICATION
     Route: 049
     Dates: start: 20030115, end: 20030202
  5. SURGAM [Suspect]
     Indication: DRUG USE FOR UNKNOWN INDICATION
     Route: 049
     Dates: end: 20030202
  6. CIBLOR [Suspect]
     Route: 049
     Dates: end: 20030202
  7. CIBLOR [Suspect]
     Indication: DRUG USE FOR UNKNOWN INDICATION
     Route: 049
     Dates: end: 20030202

REACTIONS (3)
  - ERYTHEMA [None]
  - MUCOSAL ULCERATION [None]
  - STEVENS-JOHNSON SYNDROME [None]
